APPROVED DRUG PRODUCT: TRANSDERM SCOP
Active Ingredient: SCOPOLAMINE
Strength: 1MG/72HR
Dosage Form/Route: SYSTEM;TRANSDERMAL
Application: N017874 | Product #001 | TE Code: AB
Applicant: BAXTER HEALTHCARE CORP
Approved: Approved Prior to Jan 1, 1982 | RLD: Yes | RS: No | Type: RX